FAERS Safety Report 7434549-4 (Version None)
Quarter: 2011Q2

REPORT INFORMATION
  Report Type: 
  Country: None (occurrence: None)
  Receive Date: 20110425
  Receipt Date: 20110420
  Transmission Date: 20111010
  Serious: Yes (Life-Threatening)
  Sender: FDA-Public Use
  Company Number: MY-MILLENNIUM PHARMACEUTICALS, INC.-2011-01676

PATIENT

DRUGS (2)
  1. VELCADE [Suspect]
     Dosage: 1.0 MG/M2, UNK
     Route: 042
     Dates: start: 20110314, end: 20110317
  2. PANOBINOSTAT [Suspect]
     Indication: T-CELL LYMPHOMA
     Dosage: 15 MG, UNK
     Route: 048
     Dates: start: 20110314, end: 20110318

REACTIONS (1)
  - ACUTE CORONARY SYNDROME [None]
